FAERS Safety Report 8458952-9 (Version None)
Quarter: 2012Q2

REPORT INFORMATION
  Report Type: 
  Country: None (occurrence: None)
  Receive Date: 20120622
  Receipt Date: 20120613
  Transmission Date: 20120825
  Serious: Yes (Other)
  Sender: FDA-Public Use
  Company Number: SE-B.I. PHARMACEUTICALS,INC./RIDGEFIELD-2012-SW-00481SW

PATIENT
  Sex: Female
  Weight: 93 kg

DRUGS (1)
  1. PRADAXA [Suspect]
     Indication: THROMBOSIS PROPHYLAXIS
     Dosage: 300 MG
     Route: 048
     Dates: start: 20110101

REACTIONS (3)
  - ABDOMINAL PAIN UPPER [None]
  - WEIGHT DECREASED [None]
  - HAEMATOCHEZIA [None]
